FAERS Safety Report 15053630 (Version 1)
Quarter: 2018Q2

REPORT INFORMATION
  Report Type: Report from Study
  Country: US (occurrence: US)
  Receive Date: 20180622
  Receipt Date: 20180622
  Transmission Date: 20180711
  Serious: No
  Sender: FDA-Public Use
  Company Number: US-AMGEN-USASL2016052006

PATIENT
  Age: 65 Year
  Sex: Male

DRUGS (1)
  1. NPLATE [Suspect]
     Active Substance: ROMIPLOSTIM
     Indication: IMMUNE THROMBOCYTOPENIC PURPURA
     Dosage: UNK, Q10DAYS
     Route: 065
     Dates: start: 201601

REACTIONS (3)
  - Inappropriate schedule of drug administration [Unknown]
  - Impaired work ability [Unknown]
  - Migraine [Unknown]

NARRATIVE: CASE EVENT DATE: 2016
